FAERS Safety Report 17767985 (Version 3)
Quarter: 2020Q2

REPORT INFORMATION
  Report Type: Report from Study
  Country: CA (occurrence: CA)
  Receive Date: 20200511
  Receipt Date: 20200610
  Transmission Date: 20200714
  Serious: Yes (Hospitalization, Other)
  Sender: FDA-Public Use
  Company Number: PHHY2017CA131636

PATIENT
  Age: 90 Year
  Sex: Female

DRUGS (2)
  1. SANDOSTATIN LAR DEPOT [Suspect]
     Active Substance: OCTREOTIDE ACETATE
     Indication: CARCINOID TUMOUR
     Dosage: 30 MG, QMO (EVERY 4 WEEKS)
     Route: 030
     Dates: start: 20170511
  2. NORVASC [Concomitant]
     Active Substance: AMLODIPINE BESYLATE
     Indication: PRODUCT USED FOR UNKNOWN INDICATION
     Dosage: UNK
     Route: 065

REACTIONS (14)
  - Rash [Unknown]
  - Sepsis [Unknown]
  - Ligament sprain [Unknown]
  - Breast mass [Unknown]
  - Injection site haemorrhage [Unknown]
  - Fall [Unknown]
  - Nausea [Unknown]
  - Blood pressure increased [Unknown]
  - Herpes zoster [Unknown]
  - Vomiting [Unknown]
  - Breast cancer [Unknown]
  - Oedema peripheral [Unknown]
  - Second primary malignancy [Unknown]
  - Breast pain [Not Recovered/Not Resolved]

NARRATIVE: CASE EVENT DATE: 201709
